FAERS Safety Report 9712775 (Version 1)
Quarter: 2013Q4

REPORT INFORMATION
  Report Type: Spontaneous
  Country: SE (occurrence: SE)
  Receive Date: 20131126
  Receipt Date: 20131126
  Transmission Date: 20140711
  Serious: Yes (Hospitalization, Other)
  Sender: FDA-Public Use
  Company Number: SE-ASTRAZENECA-2013SE85397

PATIENT
  Age: 526 Month
  Sex: Female
  Weight: 62 kg

DRUGS (8)
  1. METOPROLOL [Suspect]
     Indication: MYOCARDIAL INFARCTION
     Dates: start: 201304, end: 2013
  2. METOPROLOL [Suspect]
     Indication: MYOCARDIAL INFARCTION
     Dates: start: 2013
  3. BRILINTA [Suspect]
     Indication: MYOCARDIAL INFARCTION
     Dosage: UNKNOWN DOSE, BID
     Route: 048
     Dates: start: 201304
  4. RAMIPRIL [Suspect]
     Route: 048
     Dates: start: 201304, end: 2013
  5. RAMIPRIL [Suspect]
     Route: 048
     Dates: start: 2013
  6. ATORVASTATIN [Concomitant]
     Dates: start: 201304, end: 2013
  7. ATORVASTATIN [Concomitant]
     Dates: start: 2013
  8. THROMBIL [Concomitant]
     Dates: start: 201304

REACTIONS (7)
  - Loss of consciousness [Recovered/Resolved]
  - Tremor [Recovered/Resolved]
  - Blood pressure decreased [Recovered/Resolved]
  - Nausea [Recovered/Resolved]
  - Back pain [Recovered/Resolved]
  - Musculoskeletal pain [Recovered/Resolved]
  - Dizziness [Recovered/Resolved]
